FAERS Safety Report 19798673 (Version 1)
Quarter: 2021Q3

REPORT INFORMATION
  Report Type: Spontaneous
  Country: US (occurrence: US)
  Receive Date: 20210907
  Receipt Date: 20210907
  Transmission Date: 20211014
  Serious: Yes (Other)
  Sender: FDA-Public Use
  Company Number: US-AMGEN-USASP2021136463

PATIENT
  Age: 89 Year
  Sex: Male

DRUGS (1)
  1. BEVACIZUMAB. [Suspect]
     Active Substance: BEVACIZUMAB
     Indication: NEOVASCULAR AGE-RELATED MACULAR DEGENERATION
     Dosage: UNK

REACTIONS (6)
  - Hypopyon [Unknown]
  - Retinal scar [Unknown]
  - Off label use [Unknown]
  - Endophthalmitis [Recovered/Resolved]
  - Cystoid macular oedema [Unknown]
  - Vitritis [Unknown]
